FAERS Safety Report 4768143-0 (Version None)
Quarter: 2005Q3

REPORT INFORMATION
  Report Type: 
  Country: None (occurrence: None)
  Receive Date: 20050912
  Receipt Date: 20050912
  Transmission Date: 20060218
  Serious: Yes (Hospitalization)
  Sender: FDA-Public Use
  Company Number: None

PATIENT
  Age: 22 Year
  Sex: Male
  Weight: 56.6996 kg

DRUGS (2)
  1. PROZAC [Suspect]
     Indication: DEPRESSION
     Dosage: 0.5 TO 1MG ONCE DAILY PO
     Route: 048
     Dates: start: 19951101, end: 19960103
  2. TRANXENE [Concomitant]

REACTIONS (5)
  - GASTRITIS [None]
  - INFLUENZA LIKE ILLNESS [None]
  - RASH [None]
  - STOMACH DISCOMFORT [None]
  - UPPER GASTROINTESTINAL HAEMORRHAGE [None]
